FAERS Safety Report 6452959-9 (Version None)
Quarter: 2009Q4

REPORT INFORMATION
  Report Type: 
  Country: None (occurrence: None)
  Receive Date: 20091124
  Receipt Date: 20091112
  Transmission Date: 20100525
  Serious: Yes (Other)
  Sender: FDA-Public Use
  Company Number: BR-PFIZER INC-2009254545

PATIENT
  Age: 70 Year
  Sex: Male
  Weight: 82 kg

DRUGS (5)
  1. VIAGRA [Suspect]
     Indication: ERECTILE DYSFUNCTION
     Dosage: 25 MG, AS NEEDED
     Route: 048
     Dates: start: 20090801
  2. DIOVAN HCT [Concomitant]
     Dosage: 160 MG, UNK
  3. AMLODIPINE [Concomitant]
     Dosage: 10 MG, UNK
  4. HYDROCHLOROTHIAZIDE [Concomitant]
     Indication: BLOOD PRESSURE
     Dosage: 12.5 MG, UNK
  5. METOPROLOL [Concomitant]
     Indication: BLOOD PRESSURE
     Dosage: 100 MG, UNK

REACTIONS (7)
  - BRONCHITIS [None]
  - ERYTHEMA [None]
  - EXTRASYSTOLES [None]
  - FEELING HOT [None]
  - HEART RATE INCREASED [None]
  - NASAL CONGESTION [None]
  - OBSTRUCTIVE AIRWAYS DISORDER [None]
